FAERS Safety Report 4452200-2 (Version None)
Quarter: 2004Q3

REPORT INFORMATION
  Report Type: 
  Country: None (occurrence: None)
  Receive Date: 20040916
  Receipt Date: 20040916
  Transmission Date: 20050211
  Serious: Yes (Other)
  Sender: FDA-Public Use
  Company Number: None

PATIENT
  Age: 86 Year
  Sex: Male
  Weight: 85.7298 kg

DRUGS (9)
  1. TEQUIN [Suspect]
     Indication: PNEUMONIA
     Dosage: 400MG  DAILY  INTRAVENOUS
     Route: 042
     Dates: start: 20031126, end: 20031129
  2. PREVACID [Concomitant]
  3. LANTUS [Concomitant]
  4. HUMULIN N [Concomitant]
  5. WARFARIN SODIUM [Concomitant]
  6. IMDUR [Concomitant]
  7. LOPRESSOR [Concomitant]
  8. ALLOPURINOL [Concomitant]
  9. CARDIZEM [Concomitant]

REACTIONS (2)
  - AGITATION [None]
  - CONFUSIONAL STATE [None]
